FAERS Safety Report 8276010-3 (Version None)
Quarter: 2012Q2

REPORT INFORMATION
  Report Type: 
  Country: None (occurrence: None)
  Receive Date: 20120412
  Receipt Date: 20120406
  Transmission Date: 20120825
  Serious: Yes (Other)
  Sender: FDA-Public Use
  Company Number: US-BAYER-2011-044845

PATIENT
  Age: 36 Year
  Sex: Female
  Weight: 80 kg

DRUGS (27)
  1. ATENOLOL [Concomitant]
     Indication: HYPERTENSION
     Dosage: 25 MG, UNK
     Dates: start: 20090611
  2. LORAZEPAM [Concomitant]
  3. PROTONIX [Concomitant]
  4. LEVOXYL [Concomitant]
  5. CARAFATE [Concomitant]
     Indication: DYSPEPSIA
  6. ANTACIDS [Concomitant]
     Indication: OESOPHAGEAL DISORDER
  7. PAXIL [Concomitant]
     Indication: THYROID DISORDER
     Dosage: UNK
     Dates: start: 20060101
  8. ATIVAN [Concomitant]
     Indication: ANXIETY
  9. ZANTAC [Concomitant]
     Indication: DYSPEPSIA
  10. ASPIRIN [Concomitant]
     Dosage: UNK UNK, QD
  11. METOCLOPRAMIDE [Concomitant]
  12. LEVOTHYROXINE SODIUM [Concomitant]
     Indication: HYPOTHYROIDISM
     Dosage: UNK
     Dates: start: 20060101
  13. ATIVAN [Concomitant]
     Indication: DEPRESSION
     Dosage: 2.5 MG, UNK
     Dates: start: 20060101
  14. PRILOSEC [Concomitant]
     Indication: GASTROOESOPHAGEAL REFLUX DISEASE
     Dosage: UNK
     Dates: start: 20060101
  15. TRAZODONE HCL [Concomitant]
     Indication: ANXIETY
  16. METFORMIN HCL [Concomitant]
     Indication: DIABETES MELLITUS
     Dosage: 500 MG, UNK
     Dates: start: 20060101
  17. PROMETHAZINE [Concomitant]
  18. MYLANTA MAXIMUM STRENGTH [Concomitant]
     Dosage: 5 ML, QID
     Route: 048
     Dates: start: 20090609
  19. YAZ [Suspect]
     Indication: MENSTRUATION IRREGULAR
  20. YAZ [Suspect]
     Indication: PREMENSTRUAL SYNDROME
  21. SPIRONOLACTONE [Concomitant]
     Indication: HIRSUTISM
     Dosage: 50 MG, UNK
     Dates: start: 20060101
  22. TRAZODONE HCL [Concomitant]
     Indication: DEPRESSION
     Dosage: UNK
     Dates: start: 20060101
  23. ACIPHEX [Concomitant]
  24. YAZ [Suspect]
     Indication: HIRSUTISM
     Route: 048
     Dates: start: 20060101, end: 20091101
  25. SUCRALFATE [Concomitant]
     Indication: SLEEP DISORDER
     Dosage: UNK
     Dates: start: 20060101
  26. NEXIUM [Concomitant]
  27. DARVOCET [Concomitant]
     Indication: HEADACHE
     Dosage: UNK UNK, PRN
     Dates: start: 20090611

REACTIONS (15)
  - CHOLELITHIASIS [None]
  - GASTRITIS [None]
  - DEPRESSION [None]
  - GASTRIC DISORDER [None]
  - GALLBLADDER INJURY [None]
  - CHOLECYSTITIS CHRONIC [None]
  - INJURY [None]
  - HIATUS HERNIA [None]
  - FEAR [None]
  - DIARRHOEA [None]
  - ANXIETY [None]
  - ABDOMINAL PAIN UPPER [None]
  - PAIN [None]
  - NAUSEA [None]
  - VOMITING [None]
